FAERS Safety Report 9463917 (Version 2)
Quarter: 2013Q3

REPORT INFORMATION
  Report Type: Spontaneous
  Country: GB (occurrence: GB)
  Receive Date: 20130819
  Receipt Date: 20130819
  Transmission Date: 20140515
  Serious: Yes (Hospitalization, Other)
  Sender: FDA-Public Use
  Company Number: GB-RANBAXY-2006US-02137

PATIENT
  Age: 60 Year
  Sex: Female

DRUGS (7)
  1. CEPHALEXIN [Suspect]
     Indication: URINARY TRACT INFECTION
     Route: 065
  2. METRONIDAZOLE [Interacting]
     Indication: URINARY TRACT INFECTION
     Route: 065
  3. WARFARIN [Interacting]
     Indication: PULMONARY EMBOLISM
     Route: 065
  4. TRIMETHOPRIM [Interacting]
     Indication: URINARY TRACT INFECTION
     Route: 065
  5. NIFEDIPINE [Concomitant]
     Indication: PRODUCT USED FOR UNKNOWN INDICATION
     Route: 065
  6. ACEBUTOLOL [Concomitant]
     Indication: PRODUCT USED FOR UNKNOWN INDICATION
     Route: 065
  7. INDAPAMIDE [Concomitant]
     Indication: PRODUCT USED FOR UNKNOWN INDICATION
     Route: 065

REACTIONS (5)
  - Abdominal wall haematoma [Recovered/Resolved]
  - Retroperitoneal haematoma [Recovered/Resolved]
  - Drug interaction [Recovered/Resolved]
  - Deep vein thrombosis [Recovered/Resolved]
  - Ureteric obstruction [Recovered/Resolved]
